FAERS Safety Report 13916960 (Version 3)
Quarter: 2017Q4

REPORT INFORMATION
  Report Type: Spontaneous
  Country: US (occurrence: US)
  Receive Date: 20170829
  Receipt Date: 20171009
  Transmission Date: 20180320
  Serious: Yes (Other)
  Sender: FDA-Public Use
  Company Number: US-PFIZER INC-2017365919

PATIENT
  Age: 58 Year
  Sex: Female

DRUGS (4)
  1. METHOTREXATE SODIUM. [Suspect]
     Active Substance: METHOTREXATE SODIUM
     Dosage: 20 MG, WEEKLY
  2. LORAZEPAM. [Suspect]
     Active Substance: LORAZEPAM
     Dosage: UNK
  3. DILTIAZEM XR [Suspect]
     Active Substance: DILTIAZEM
     Dosage: UNK
  4. SULFASALAZINE. [Suspect]
     Active Substance: SULFASALAZINE
     Dosage: 1 G, 3X/DAY

REACTIONS (21)
  - Synovitis [Unknown]
  - Arthralgia [Unknown]
  - Pain [Unknown]
  - Heart sounds abnormal [Unknown]
  - Arthropathy [Unknown]
  - Breath sounds abnormal [Unknown]
  - Condition aggravated [Unknown]
  - Grip strength decreased [Unknown]
  - Mean cell haemoglobin concentration decreased [Unknown]
  - Soft tissue swelling [Unknown]
  - Joint stiffness [Unknown]
  - Paraesthesia [Unknown]
  - Blood glucose increased [Unknown]
  - Fatigue [Unknown]
  - Joint swelling [Unknown]
  - Swelling [Unknown]
  - Tenderness [Unknown]
  - Myalgia [Unknown]
  - Gait disturbance [Unknown]
  - Bone erosion [Unknown]
  - Hypoaesthesia [Unknown]
